FAERS Safety Report 11543725 (Version 1)
Quarter: 2015Q3

REPORT INFORMATION
  Report Type: Report from Study
  Country: US (occurrence: US)
  Receive Date: 20150924
  Receipt Date: 20150924
  Transmission Date: 20151125
  Serious: Yes (Other)
  Sender: FDA-Public Use
  Company Number: US-ROCHE-1637681

PATIENT

DRUGS (1)
  1. ALTEPLASE [Suspect]
     Active Substance: ALTEPLASE
     Indication: PULMONARY EMBOLISM
     Dosage: 24 MG AT 1 MG/H WITH SALINE COOLANT AT 35 ML/H
     Route: 065

REACTIONS (6)
  - Mucosal haemorrhage [Recovered/Resolved]
  - Anaemia [Recovered/Resolved]
  - Vascular pseudoaneurysm [Recovered/Resolved]
  - Haemoptysis [Unknown]
  - Haematoma [Recovered/Resolved]
  - Haematuria [Recovered/Resolved]
